FAERS Safety Report 14243356 (Version 1)
Quarter: 2017Q4

REPORT INFORMATION
  Report Type: Spontaneous
  Country: HK (occurrence: HK)
  Receive Date: 20171201
  Receipt Date: 20171201
  Transmission Date: 20180321
  Serious: Yes (Hospitalization, Other)
  Sender: FDA-Public Use
  Company Number: HK-ROCHE-2028673

PATIENT
  Age: 62 Year
  Sex: Male

DRUGS (4)
  1. OXALIPLATIN. [Suspect]
     Active Substance: OXALIPLATIN
     Indication: COLORECTAL CANCER METASTATIC
     Dosage: CAPOX ALONG WITH BEVACIZUMAB
     Route: 065
  2. CAPECITABINE. [Suspect]
     Active Substance: CAPECITABINE
     Indication: COLORECTAL CANCER METASTATIC
     Dosage: FOR 12 CYCLES IN CAPIRI
     Route: 065
  3. AVASTIN [Suspect]
     Active Substance: BEVACIZUMAB
     Indication: COLORECTAL CANCER METASTATIC
     Dosage: ALONG WITH CAPOX
     Route: 065
  4. CAPECITABINE. [Suspect]
     Active Substance: CAPECITABINE
     Dosage: CAPOX ALONG WITH BEVACIZUMAB
     Route: 065

REACTIONS (5)
  - Large intestine perforation [Recovered/Resolved]
  - Decubitus ulcer [Unknown]
  - Acute abdomen [Recovered/Resolved]
  - Intestinal obstruction [Unknown]
  - Neoplasm [Unknown]
